FAERS Safety Report 17756073 (Version 1)
Quarter: 2020Q2

REPORT INFORMATION
  Report Type: Spontaneous
  Country: US (occurrence: US)
  Receive Date: 20200505
  Receipt Date: 20200505
  Transmission Date: 20200714
  Serious: No
  Sender: FDA-Public Use
  Company Number: None

PATIENT

DRUGS (1)
  1. LAROSE KILLS GERMS HAND SANITIZER [Suspect]
     Active Substance: BENZALKONIUM CHLORIDE

REACTIONS (3)
  - Circumstance or information capable of leading to medication error [None]
  - Therapeutic product ineffective [None]
  - Product use complaint [None]

NARRATIVE: CASE EVENT DATE: 20200412
